FAERS Safety Report 20092743 (Version 2)
Quarter: 2025Q2

REPORT INFORMATION
  Report Type: Report from Study
  Country: FR (occurrence: FR)
  Receive Date: 20211120
  Receipt Date: 20250625
  Transmission Date: 20250716
  Serious: Yes (Other)
  Sender: AUROBINDO
  Company Number: FR-ViiV Healthcare Limited-FR2021GSK228447

PATIENT

DRUGS (3)
  1. ABACAVIR [Suspect]
     Active Substance: ABACAVIR
     Indication: HIV infection
     Route: 065
  2. LAMIVUDINE [Suspect]
     Active Substance: LAMIVUDINE
     Indication: HIV infection
     Route: 065
  3. LAMIVUDINE [Suspect]
     Active Substance: LAMIVUDINE
     Dosage: ONCE A DAY(7 DAYS A WEEK)
     Route: 065

REACTIONS (4)
  - Pathogen resistance [Unknown]
  - Viral mutation identified [Unknown]
  - Treatment noncompliance [Unknown]
  - Virologic failure [Recovered/Resolved]
